FAERS Safety Report 9322378 (Version 1)
Quarter: 2013Q2

REPORT INFORMATION
  Report Type: Spontaneous
  Country: GB (occurrence: GB)
  Receive Date: 20130531
  Receipt Date: 20130531
  Transmission Date: 20140414
  Serious: Yes (Other)
  Sender: FDA-Public Use
  Company Number: GB-ABBOTT-13X-167-1097466-00

PATIENT
  Sex: Male

DRUGS (1)
  1. EPILIM [Suspect]
     Indication: PRODUCT USED FOR UNKNOWN INDICATION
     Route: 065

REACTIONS (6)
  - Skin cancer [Unknown]
  - Cognitive disorder [Recovered/Resolved]
  - Hypersomnia [Unknown]
  - Gait disturbance [Unknown]
  - Pruritus generalised [Unknown]
  - Feeling abnormal [Unknown]
